FAERS Safety Report 15367305 (Version 1)
Quarter: 2018Q3

REPORT INFORMATION
  Report Type: Spontaneous
  Country: JP (occurrence: JP)
  Receive Date: 20180910
  Receipt Date: 20180910
  Transmission Date: 20181010
  Serious: Yes (Other)
  Sender: FDA-Public Use
  Company Number: JP-SAKK-BA201803369001

PATIENT
  Age: 58 Year
  Sex: Male

DRUGS (1)
  1. BCG (CONNAUGHT) IT [Suspect]
     Active Substance: BACILLUS CALMETTE-GUERIN SUBSTRAIN CONNAUGHT LIVE ANTIGEN
     Indication: BLADDER CANCER
     Route: 043

REACTIONS (2)
  - Prostatitis [Unknown]
  - Prostatic specific antigen increased [Unknown]
